FAERS Safety Report 13602836 (Version 1)
Quarter: 2017Q2

REPORT INFORMATION
  Report Type: Spontaneous
  Country: AR (occurrence: AR)
  Receive Date: 20170601
  Receipt Date: 20170601
  Transmission Date: 20170830
  Serious: Yes (Other)
  Sender: FDA-Public Use
  Company Number: AR-PFIZER INC-2017241352

PATIENT
  Age: 70 Year
  Sex: Male

DRUGS (3)
  1. PRISTIQ EXTENDED-RELEASE [Suspect]
     Active Substance: DESVENLAFAXINE SUCCINATE
     Dosage: 50 MG, DAILY
  2. CLONAZEPAM. [Concomitant]
     Active Substance: CLONAZEPAM
     Dosage: 1 MG, UNK
  3. QUETIAPIN [Concomitant]
     Active Substance: QUETIAPINE
     Dosage: 100 MG, UNK

REACTIONS (4)
  - Gait disturbance [Recovered/Resolved]
  - Red blood cell sedimentation rate increased [Recovered/Resolved]
  - Purpura [Recovered/Resolved]
  - Pain in extremity [Recovered/Resolved]
